FAERS Safety Report 11129721 (Version 1)
Quarter: 2015Q2

REPORT INFORMATION
  Report Type: Spontaneous
  Country: US (occurrence: US)
  Receive Date: 20150521
  Receipt Date: 20150521
  Transmission Date: 20150821
  Serious: Yes (Other)
  Sender: FDA-Public Use
  Company Number: US-ELI_LILLY_AND_COMPANY-US201505004666

PATIENT
  Age: 38 Year
  Sex: Male
  Weight: 125 kg

DRUGS (1)
  1. PROZAC [Suspect]
     Active Substance: FLUOXETINE HYDROCHLORIDE
     Indication: OBSESSIVE-COMPULSIVE DISORDER
     Dosage: UNK, UNKNOWN
     Route: 065

REACTIONS (2)
  - Feeling abnormal [Recovered/Resolved]
  - Suicidal ideation [Recovered/Resolved]
